FAERS Safety Report 7699903-4 (Version None)
Quarter: 2011Q3

REPORT INFORMATION
  Report Type: 
  Country: None (occurrence: None)
  Receive Date: 20110815
  Receipt Date: 20110803
  Transmission Date: 20111222
  Serious: Yes (Hospitalization, Other)
  Sender: FDA-Public Use
  Company Number: 120728

PATIENT
  Age: 2 Year
  Sex: Male

DRUGS (1)
  1. BUPRENORPHINE HCL [Suspect]
     Dosage: 1/2 OF A 4MG TABLET

REACTIONS (11)
  - BRAIN OEDEMA [None]
  - HYPERREFLEXIA [None]
  - CSF PROTEIN INCREASED [None]
  - INFECTION [None]
  - HYPERTONIA [None]
  - LEUKOENCEPHALOPATHY [None]
  - LOSS OF CONSCIOUSNESS [None]
  - MIOSIS [None]
  - MEDICATION ERROR [None]
  - ACCIDENTAL DRUG INTAKE BY CHILD [None]
  - PYREXIA [None]
